FAERS Safety Report 24981672 (Version 3)
Quarter: 2025Q3

REPORT INFORMATION
  Report Type: Spontaneous
  Country: US (occurrence: US)
  Receive Date: 20250218
  Receipt Date: 20250905
  Transmission Date: 20251020
  Serious: Yes (Hospitalization)
  Sender: DOMPE FARMACEUTICI
  Company Number: US-FARMAPROD-202501-0239

PATIENT
  Age: 80 Year
  Sex: Female
  Weight: 69.54 kg

DRUGS (12)
  1. OXERVATE [Suspect]
     Active Substance: CENEGERMIN-BKBJ
     Indication: Neurotrophic keratopathy
     Route: 047
     Dates: start: 20250115
  2. OXERVATE [Suspect]
     Active Substance: CENEGERMIN-BKBJ
  3. SODIUM FLUORIDE [Concomitant]
     Active Substance: SODIUM FLUORIDE
  4. AMOXICILLIN [Concomitant]
     Active Substance: AMOXICILLIN
  5. FAMOTIDINE [Concomitant]
     Active Substance: FAMOTIDINE
  6. DOXYCYCLINE HYCLATE [Concomitant]
     Active Substance: DOXYCYCLINE HYCLATE
  7. CAPECITABINE [Concomitant]
     Active Substance: CAPECITABINE
  8. TRAZODONE HYDROCHLORIDE [Concomitant]
     Active Substance: TRAZODONE HYDROCHLORIDE
  9. PREDNISONE [Concomitant]
     Active Substance: PREDNISONE
  10. ONDANSETRON HYDROCHLORIDE [Concomitant]
     Active Substance: ONDANSETRON HYDROCHLORIDE
  11. OMEPRAZOLE [Concomitant]
     Active Substance: OMEPRAZOLE
  12. TYRVAYA [Concomitant]
     Active Substance: VARENICLINE TARTRATE
     Indication: Dry eye
     Route: 045
     Dates: start: 20241213

REACTIONS (8)
  - Hospitalisation [Unknown]
  - Eye pain [Not Recovered/Not Resolved]
  - Periorbital pain [Recovering/Resolving]
  - Ocular discomfort [Recovering/Resolving]
  - Eye pruritus [Unknown]
  - Dry eye [Unknown]
  - Rash [Unknown]
  - Eyelid pain [Not Recovered/Not Resolved]

NARRATIVE: CASE EVENT DATE: 20250210
